FAERS Safety Report 11837758 (Version 1)
Quarter: 2015Q4

REPORT INFORMATION
  Report Type: Report from Study
  Country: CN (occurrence: CN)
  Receive Date: 20151215
  Receipt Date: 20151215
  Transmission Date: 20160305
  Serious: Yes (Death, Other)
  Sender: FDA-Public Use
  Company Number: CN-BAYER-2015-484059

PATIENT
  Age: 56 Year
  Sex: Male

DRUGS (1)
  1. NEXAVAR [Suspect]
     Active Substance: SORAFENIB
     Indication: HEPATOCELLULAR CARCINOMA
     Dosage: 400 MG, BID
     Route: 048
     Dates: start: 20150902, end: 201511

REACTIONS (8)
  - Asthma [None]
  - Ascites [None]
  - Productive cough [None]
  - Haemoptysis [None]
  - Cough [None]
  - Haemoptysis [None]
  - Death [Fatal]
  - Shock [None]

NARRATIVE: CASE EVENT DATE: 20151128
